FAERS Safety Report 12934314 (Version 10)
Quarter: 2017Q2

REPORT INFORMATION
  Report Type: Report from Study
  Country: CA (occurrence: CA)
  Receive Date: 20161111
  Receipt Date: 20170510
  Transmission Date: 20170830
  Serious: Yes (Death, Hospitalization, Other)
  Sender: FDA-Public Use
  Company Number: PHHY2016CA154381

PATIENT
  Age: 65 Year
  Sex: Female

DRUGS (2)
  1. SANDOSTATIN LAR DEPOT [Suspect]
     Active Substance: OCTREOTIDE ACETATE
     Indication: CARCINOID TUMOUR
     Dosage: 30 MG, QMO (EVERY 4 WEEKS)
     Route: 030
     Dates: start: 20161013
  2. SANDOSTATIN [Suspect]
     Active Substance: OCTREOTIDE ACETATE
     Indication: CARCINOID SYNDROME
     Dosage: 200 UG, TID
     Route: 058
     Dates: start: 20170407

REACTIONS (11)
  - Fall [Unknown]
  - Abasia [Unknown]
  - Mobility decreased [Unknown]
  - Blood glucose increased [Unknown]
  - Retinal detachment [Unknown]
  - Malaise [Unknown]
  - Humerus fracture [Unknown]
  - Confusional state [Unknown]
  - Death [Fatal]
  - Upper limb fracture [Unknown]
  - Needle issue [Unknown]

NARRATIVE: CASE EVENT DATE: 20161105
